FAERS Safety Report 9929761 (Version 7)
Quarter: 2014Q2

REPORT INFORMATION
  Report Type: Spontaneous
  Country: US (occurrence: US)
  Receive Date: 20140227
  Receipt Date: 20140619
  Transmission Date: 20141212
  Serious: Yes (Hospitalization)
  Sender: FDA-Public Use
  Company Number: US-INCYTE CORPORATION-2014IN000466

PATIENT
  Sex: Female
  Weight: 57 kg

DRUGS (8)
  1. JAKAFI [Suspect]
     Indication: MYELOFIBROSIS
     Dosage: 20 MG, BID
     Route: 048
     Dates: start: 20130424
  2. JAKAFI [Suspect]
     Dosage: 15 MG, BID
     Route: 048
  3. OMEPRAZOLE [Concomitant]
  4. CLARITIN                           /00413701/ [Concomitant]
  5. TRAZODONE [Concomitant]
  6. NITROFURANTOIN [Concomitant]
  7. PREDNISONE [Concomitant]
  8. METHADONE [Concomitant]

REACTIONS (7)
  - Fall [Recovered/Resolved]
  - Limb injury [Recovering/Resolving]
  - Kidney infection [Unknown]
  - Back pain [Unknown]
  - Pneumonia [Unknown]
  - Blood pressure increased [Unknown]
  - Hospitalisation [Unknown]
